FAERS Safety Report 13152835 (Version 2)
Quarter: 2017Q2

REPORT INFORMATION
  Report Type: Spontaneous
  Country: US (occurrence: US)
  Receive Date: 20170126
  Receipt Date: 20170525
  Transmission Date: 20170830
  Serious: No
  Sender: FDA-Public Use
  Company Number: US-TEVA-728260ACC

PATIENT
  Sex: Female

DRUGS (16)
  1. CELECOXIB. [Concomitant]
     Active Substance: CELECOXIB
  2. NORTRIPTYLIN [Concomitant]
     Active Substance: NORTRIPTYLINE
  3. TRAZODONE [Concomitant]
     Active Substance: TRAZODONE HYDROCHLORIDE
  4. BACLOFEN. [Concomitant]
     Active Substance: BACLOFEN
  5. LISINOPRIL. [Concomitant]
     Active Substance: LISINOPRIL
  6. VESICARE [Concomitant]
     Active Substance: SOLIFENACIN SUCCINATE
  7. MONTELUKAST [Concomitant]
     Active Substance: MONTELUKAST SODIUM
  8. DULOXETINE. [Concomitant]
     Active Substance: DULOXETINE
  9. SMZ-TMP [Concomitant]
     Active Substance: SULFAMETHOXAZOLE\TRIMETHOPRIM
  10. MODAFINIL. [Concomitant]
     Active Substance: MODAFINIL
  11. ALENDRONATE [Concomitant]
     Active Substance: ALENDRONATE SODIUM
  12. NEXIUM [Concomitant]
     Active Substance: ESOMEPRAZOLE MAGNESIUM
  13. CARBAMAZEPINE. [Concomitant]
     Active Substance: CARBAMAZEPINE
  14. GABAPENTIN. [Concomitant]
     Active Substance: GABAPENTIN
  15. COPAXONE [Suspect]
     Active Substance: GLATIRAMER ACETATE
     Indication: MULTIPLE SCLEROSIS
     Route: 058
     Dates: start: 201404
  16. AMLODIPINE [Concomitant]
     Active Substance: AMLODIPINE BESYLATE

REACTIONS (1)
  - Gait disturbance [Unknown]

NARRATIVE: CASE EVENT DATE: 2016
